FAERS Safety Report 6664792-3 (Version None)
Quarter: 2010Q1

REPORT INFORMATION
  Report Type: 
  Country: None (occurrence: None)
  Receive Date: 20100330
  Receipt Date: 20100317
  Transmission Date: 20100710
  Serious: Yes (Other)
  Sender: FDA-Public Use
  Company Number: 008883

PATIENT
  Sex: Female

DRUGS (7)
  1. CERTOLIZUMAB PEGOL (CERTOLIZUMAB PEGOL) [Suspect]
     Indication: RHEUMATOID ARTHRITIS
     Dosage: 400 MG 1X/4 WEEKS, SUBCUTANEOUS
     Route: 058
     Dates: start: 20090926, end: 20100213
  2. DICLOFENAC SODIUM [Concomitant]
  3. NATURES OWN THERAPEUTIC FORMULA [Concomitant]
  4. ISONIAZID [Concomitant]
  5. SACCHARATED IRON OXIDE [Concomitant]
  6. GLUCOSE [Concomitant]
  7. METHOTREXATE [Concomitant]

REACTIONS (1)
  - BREAST CANCER [None]
